FAERS Safety Report 23789118 (Version 1)
Quarter: 2024Q2

REPORT INFORMATION
  Report Type: Report from Study
  Country: US (occurrence: None)
  Receive Date: 20240426
  Receipt Date: 20240426
  Transmission Date: 20240716
  Serious: Yes (Hospitalization)
  Sender: FDA-Public Use
  Company Number: 2024A096093

PATIENT
  Sex: Female

DRUGS (1)
  1. CALQUENCE [Suspect]
     Active Substance: ACALABRUTINIB
     Indication: Chronic lymphocytic leukaemia
     Route: 048
     Dates: start: 202307

REACTIONS (5)
  - Ventricular tachycardia [Unknown]
  - Pneumonia influenzal [Unknown]
  - Atrial fibrillation [Unknown]
  - Pruritus [Unknown]
  - Product dose omission issue [Unknown]
